FAERS Safety Report 21547039 (Version 1)
Quarter: 2022Q4

REPORT INFORMATION
  Report Type: Spontaneous
  Country: US (occurrence: None)
  Receive Date: 20221101
  Receipt Date: 20221101
  Transmission Date: 20230112
  Serious: Yes (Life-Threatening, Hospitalization)
  Sender: FDA-Public Use
  Company Number: None

PATIENT

DRUGS (2)
  1. HYDROMORPHONE [Suspect]
     Active Substance: HYDROMORPHONE
  2. FENTANYL [Suspect]
     Active Substance: FENTANYL

REACTIONS (2)
  - Unresponsive to stimuli [None]
  - Hospice care [None]

NARRATIVE: CASE EVENT DATE: 20210125
